FAERS Safety Report 5490593-8 (Version None)
Quarter: 2007Q4

REPORT INFORMATION
  Report Type: 
  Country: None (occurrence: None)
  Receive Date: 20071019
  Receipt Date: 20071010
  Transmission Date: 20080405
  Serious: Yes (Hospitalization)
  Sender: FDA-Public Use
  Company Number: FR-JNJFOC-20071004307

PATIENT
  Age: 52 Year
  Sex: Male

DRUGS (1)
  1. TOPALGIC [Suspect]
     Indication: DRUG USE FOR UNKNOWN INDICATION
     Route: 048
     Dates: start: 20070831, end: 20070902

REACTIONS (6)
  - CONFUSIONAL STATE [None]
  - DISORIENTATION [None]
  - HYPERTHERMIA [None]
  - LEUKOCYTURIA [None]
  - OVERDOSE [None]
  - TREMOR [None]
